FAERS Safety Report 7549577-8 (Version None)
Quarter: 2011Q2

REPORT INFORMATION
  Report Type: 
  Country: None (occurrence: None)
  Receive Date: 20110615
  Receipt Date: 20110608
  Transmission Date: 20111010
  Serious: Yes (Life-Threatening)
  Sender: FDA-Public Use
  Company Number: A0924390A

PATIENT
  Age: 67 Year
  Sex: Female

DRUGS (10)
  1. GABAPENTIN [Concomitant]
  2. TRIAMTERENE AND HYDROCHLOROTHIAZIDE [Concomitant]
  3. CARVEDILOL [Concomitant]
  4. EFFEXOR [Concomitant]
  5. FLUTICASONE PROPIONATE [Concomitant]
  6. TRAZODONE HCL [Concomitant]
  7. TOPIRAMATE [Concomitant]
  8. METFORMIN HCL [Concomitant]
  9. LOVAZA [Suspect]
     Dosage: 2CAP TWICE PER DAY
     Route: 048
     Dates: start: 20101206
  10. LORA TAB [Concomitant]

REACTIONS (5)
  - PRODUCT ODOUR ABNORMAL [None]
  - MYOCARDIAL INFARCTION [None]
  - DYSPEPSIA [None]
  - NAUSEA [None]
  - PRODUCT QUALITY ISSUE [None]
